FAERS Safety Report 8146931-0 (Version None)
Quarter: 2012Q1

REPORT INFORMATION
  Report Type: 
  Country: None (occurrence: None)
  Receive Date: 20120217
  Receipt Date: 20120208
  Transmission Date: 20120608
  Serious: Yes (Other)
  Sender: FDA-Public Use
  Company Number: JP-ASTRAZENECA-2012SE06013

PATIENT
  Age: 71 Year
  Sex: Male

DRUGS (29)
  1. ZOLADEX [Suspect]
     Indication: PROSTATE CANCER
     Route: 058
     Dates: start: 20101207, end: 20110131
  2. DECADRON [Concomitant]
     Indication: PROSTATE CANCER
     Dosage: DOSE UNKNOWN
     Route: 048
  3. DEXAMETHASONE [Concomitant]
     Dosage: DOSE UNKNOWN
     Route: 041
     Dates: start: 20101102
  4. OMEPRAZOLE [Suspect]
     Route: 048
     Dates: start: 20100224
  5. ZOMETA [Concomitant]
     Dosage: DOSE UNKNOWN
     Route: 065
     Dates: start: 20110404
  6. ZOMETA [Concomitant]
     Dosage: DOSE UNKNOWN
     Route: 065
     Dates: start: 20110920
  7. LOXONIN [Concomitant]
     Dosage: NUMBER OF SEPARATE DOSAGES UNKNOWN
     Route: 048
     Dates: start: 20120116
  8. DEXAMETHASONE [Concomitant]
     Dosage: DOSE UNKNOWN
     Route: 041
     Dates: start: 20110920
  9. ZOMETA [Concomitant]
     Dosage: DOSE UNKNOWN
     Route: 065
     Dates: start: 20111205
  10. ZOLADEX [Concomitant]
     Route: 058
     Dates: start: 20070904, end: 20080513
  11. ZOMETA [Concomitant]
     Dosage: DOSE UNKNOWN
     Route: 065
     Dates: start: 20110627
  12. DOCETAXEL [Concomitant]
     Dates: start: 20091208, end: 20091210
  13. DOCETAXEL [Concomitant]
     Dates: start: 20100223, end: 20100225
  14. DEXAMETHASONE [Concomitant]
     Dosage: DOSE UNKNOWN
     Route: 041
     Dates: start: 20100511
  15. DEXAMETHASONE [Concomitant]
     Dosage: DOSE UNKNOWN
     Route: 041
     Dates: start: 20110627
  16. DUTASTERIDE [Concomitant]
     Dosage: DOSE UNKNOWN
     Route: 048
     Dates: start: 20100817
  17. ZOMETA [Concomitant]
     Dosage: DOSE UNKNOWN
     Route: 065
     Dates: start: 20101207
  18. DEXAMETHASONE [Concomitant]
     Dosage: DOSE UNKNOWN
     Route: 041
     Dates: start: 20100330
  19. DEXAMETHASONE [Concomitant]
     Dosage: DOSE UNKNOWN
     Route: 041
     Dates: start: 20100817
  20. DEXAMETHASONE [Concomitant]
     Dosage: DOSE UNKNOWN
     Route: 041
     Dates: start: 20100921
  21. DEXAMETHASONE [Concomitant]
     Dosage: DOSE UNKNOWN
     Route: 041
     Dates: start: 20110404
  22. DEXAMETHASONE [Concomitant]
     Dosage: DOSE UNKNOWN
     Route: 041
     Dates: start: 20111205
  23. ZOLADEX [Concomitant]
     Route: 058
     Dates: start: 20110201
  24. LAMISIL [Concomitant]
     Dosage: DOSE UNKNOWN
     Route: 048
     Dates: start: 20110425, end: 20111107
  25. DOCETAXEL [Concomitant]
     Dates: start: 20091102, end: 20091104
  26. DEXAMETHASONE [Concomitant]
     Dosage: DOSE UNKNOWN
     Route: 041
     Dates: start: 20100629
  27. DEXAMETHASONE [Concomitant]
     Dosage: DOSE UNKNOWN
     Route: 041
     Dates: start: 20110111
  28. DOCETAXEL [Concomitant]
     Dates: start: 20100119, end: 20100121
  29. DOCETAXEL [Concomitant]
     Dates: start: 20100225

REACTIONS (1)
  - OSTEONECROSIS [None]
